FAERS Safety Report 9729667 (Version 2)
Quarter: 2015Q3

REPORT INFORMATION
  Report Type: Spontaneous
  Country: US (occurrence: US)
  Receive Date: 20131204
  Receipt Date: 20150804
  Transmission Date: 20151125
  Serious: No
  Sender: FDA-Public Use
  Company Number: US-GILEAD-2009-0020887

PATIENT
  Age: 60 Year
  Sex: Male
  Weight: 127.91 kg

DRUGS (20)
  1. VIAGRA [Concomitant]
     Active Substance: SILDENAFIL CITRATE
  2. FUROSEMIDE. [Concomitant]
     Active Substance: FUROSEMIDE
  3. PROVIGIL [Concomitant]
     Active Substance: MODAFINIL
  4. LISINOPRIL. [Concomitant]
     Active Substance: LISINOPRIL
  5. DIPHENOXYLATE/ATROPINE SULFATE [Concomitant]
  6. LEVITHYROXINE [Concomitant]
  7. MORPHINE SOLUBLE [Concomitant]
  8. TIZANIDINE. [Concomitant]
     Active Substance: TIZANIDINE
  9. SUCRALFATE. [Concomitant]
     Active Substance: SUCRALFATE
  10. LORATADINE. [Concomitant]
     Active Substance: LORATADINE
  11. LOPERAMIDE [Concomitant]
     Active Substance: LOPERAMIDE
  12. COUMADIN [Concomitant]
     Active Substance: WARFARIN SODIUM
  13. METOPROLOL [Concomitant]
     Active Substance: METOPROLOL
  14. METOCLOPRAMIDE. [Concomitant]
     Active Substance: METOCLOPRAMIDE
  15. FORMOTEROL FUMARATE [Concomitant]
     Active Substance: FORMOTEROL FUMARATE
  16. FOLIC ACID. [Concomitant]
     Active Substance: FOLIC ACID
  17. LETAIRIS [Suspect]
     Active Substance: AMBRISENTAN
     Indication: PULMONARY ARTERIAL HYPERTENSION
     Route: 048
     Dates: start: 20090303
  18. SIMVASTATIN. [Concomitant]
     Active Substance: SIMVASTATIN
  19. IPRATROPIUM BROMIDE. [Concomitant]
     Active Substance: IPRATROPIUM BROMIDE
  20. FLEXERIL [Concomitant]
     Active Substance: CYCLOBENZAPRINE HYDROCHLORIDE

REACTIONS (2)
  - Chest pain [Unknown]
  - Dyspnoea [Unknown]
